FAERS Safety Report 7546503-2 (Version None)
Quarter: 2011Q2

REPORT INFORMATION
  Report Type: 
  Country: None (occurrence: None)
  Receive Date: 20110607
  Receipt Date: 20110523
  Transmission Date: 20111010
  Serious: Yes (Hospitalization)
  Sender: FDA-Public Use
  Company Number: 2011MA006250

PATIENT
  Age: 62 Year
  Sex: Male

DRUGS (1)
  1. SULFATRIM [Suspect]
     Indication: CHRONIC OBSTRUCTIVE PULMONARY DISEASE

REACTIONS (8)
  - PAIN [None]
  - PYREXIA [None]
  - TOXIC EPIDERMAL NECROLYSIS [None]
  - PRURITUS [None]
  - STAPHYLOCOCCAL INFECTION [None]
  - BLISTER [None]
  - CANDIDIASIS [None]
  - ERYTHEMA [None]
